FAERS Safety Report 6246073-5 (Version None)
Quarter: 2009Q2

REPORT INFORMATION
  Report Type: 
  Country: None (occurrence: None)
  Receive Date: 20090626
  Receipt Date: 20090410
  Transmission Date: 20091009
  Serious: No
  Sender: FDA-Public Use
  Company Number: A0765480A

PATIENT
  Age: 68 Year
  Sex: Female

DRUGS (3)
  1. SUMATRIPTAN SUCCINATE [Suspect]
     Indication: MIGRAINE
     Dosage: 100MG AS REQUIRED
     Route: 048
  2. INDERAL [Concomitant]
  3. PREMARIN [Concomitant]

REACTIONS (5)
  - DRUG INEFFECTIVE [None]
  - MEDICATION ERROR [None]
  - MIGRAINE [None]
  - PRODUCT QUALITY ISSUE [None]
  - THERAPEUTIC RESPONSE UNEXPECTED [None]
